FAERS Safety Report 10652034 (Version 1)
Quarter: 2014Q4

REPORT INFORMATION
  Report Type: Spontaneous
  Country: US (occurrence: US)
  Receive Date: 20141215
  Receipt Date: 20141215
  Transmission Date: 20150529
  Serious: No
  Sender: FDA-Public Use
  Company Number: US-PFIZER INC-2014340529

PATIENT
  Sex: Female

DRUGS (9)
  1. IBUPROFEN. [Suspect]
     Active Substance: IBUPROFEN
     Dosage: UNK
  2. ATIVAN [Suspect]
     Active Substance: LORAZEPAM
     Dosage: UNK
  3. METHADONE [Suspect]
     Active Substance: METHADONE HYDROCHLORIDE
     Dosage: UNK
  4. SEROQUEL [Suspect]
     Active Substance: QUETIAPINE FUMARATE
     Dosage: UNK
  5. GEODON [Suspect]
     Active Substance: ZIPRASIDONE HYDROCHLORIDE\ZIPRASIDONE MESYLATE
     Dosage: UNK
  6. TORADOL [Suspect]
     Active Substance: KETOROLAC TROMETHAMINE
     Dosage: UNK
  7. ASPIRIN. [Suspect]
     Active Substance: ASPIRIN
     Dosage: UNK
  8. FENTANYL. [Suspect]
     Active Substance: FENTANYL
     Dosage: UNK
  9. CYMBALTA [Suspect]
     Active Substance: DULOXETINE HYDROCHLORIDE
     Dosage: UNK

REACTIONS (1)
  - Drug hypersensitivity [Unknown]
